FAERS Safety Report 6547379-2 (Version None)
Quarter: 2010Q1

REPORT INFORMATION
  Report Type: 
  Country: None (occurrence: None)
  Receive Date: 20100119
  Receipt Date: 20100112
  Transmission Date: 20100710
  Serious: Yes (Death, Hospitalization)
  Sender: FDA-Public Use
  Company Number: ALK_01124_2010

PATIENT
  Sex: Male

DRUGS (1)
  1. VIVITROL [Suspect]
     Indication: ALCOHOLISM
     Dosage: 9380 MG 1X/MONTH INTRAMUSCULAR)
     Route: 030
     Dates: start: 20091202, end: 20100104

REACTIONS (1)
  - LOSS OF CONSCIOUSNESS [None]
